FAERS Safety Report 8292921-7 (Version None)
Quarter: 2012Q2

REPORT INFORMATION
  Report Type: 
  Country: None (occurrence: None)
  Receive Date: 20120417
  Receipt Date: 20120106
  Transmission Date: 20120825
  Serious: No
  Sender: FDA-Public Use
  Company Number: US-ASTRAZENECA-2012SE01272

PATIENT
  Sex: Male

DRUGS (2)
  1. NEXIUM [Suspect]
     Indication: OESOPHAGEAL STENOSIS
     Dosage: ONE OR TWO TIMES IN A DAY
     Route: 048
  2. NEXIUM [Suspect]
     Indication: GASTROOESOPHAGEAL REFLUX DISEASE
     Dosage: ONE OR TWO TIMES IN A DAY
     Route: 048

REACTIONS (2)
  - OFF LABEL USE [None]
  - DYSPHAGIA [None]
